FAERS Safety Report 7711925-3 (Version None)
Quarter: 2011Q3

REPORT INFORMATION
  Report Type: 
  Country: None (occurrence: None)
  Receive Date: 20110826
  Receipt Date: 20110812
  Transmission Date: 20111222
  Serious: Yes (Hospitalization)
  Sender: FDA-Public Use
  Company Number: US-UCBSA-8051125

PATIENT
  Age: 28 Year
  Sex: Female

DRUGS (7)
  1. KEPPRA [Suspect]
     Dates: start: 20090713
  2. PRENATAL VITAMINS [Concomitant]
     Indication: PREGNANCY
     Dosage: DAILY
     Route: 048
  3. FOLIC ACID [Concomitant]
     Indication: PREGNANCY
     Route: 048
  4. KEPPRA [Suspect]
     Dates: start: 20090701, end: 20090713
  5. KEPPRA [Suspect]
     Indication: CONVULSION
     Dates: end: 20081121
  6. KEPPRA [Suspect]
     Dates: start: 20081122, end: 20090609
  7. KEPPRA [Suspect]
     Dates: start: 20090701, end: 20090701

REACTIONS (5)
  - THROMBOCYTOPENIA [None]
  - GESTATIONAL DIABETES [None]
  - CONVULSION [None]
  - CAESAREAN SECTION [None]
  - PREGNANCY [None]
